FAERS Safety Report 7920843-7 (Version None)
Quarter: 2011Q4

REPORT INFORMATION
  Report Type: 
  Country: None (occurrence: None)
  Receive Date: 20111117
  Receipt Date: 20110802
  Transmission Date: 20120403
  Serious: No
  Sender: FDA-Public Use
  Company Number: US-GLAXOSMITHKLINE-A0940398A

PATIENT
  Age: 63 Year
  Sex: Male
  Weight: 104.5 kg

DRUGS (10)
  1. PROCARDIA [Concomitant]
  2. ASPIRIN [Concomitant]
  3. FLOMAX [Concomitant]
  4. VITAMIN E [Concomitant]
  5. VOTRIENT [Suspect]
     Indication: PRODUCT USED FOR UNKNOWN INDICATION
     Dosage: 800MG PER DAY
     Route: 048
  6. COREG [Concomitant]
  7. NEXIUM [Concomitant]
  8. MULTI-VITAMIN [Concomitant]
  9. LOTENSIN [Concomitant]
  10. ZOCOR [Concomitant]

REACTIONS (1)
  - OROPHARYNGEAL PAIN [None]
